FAERS Safety Report 4910891-3 (Version None)
Quarter: 2006Q1

REPORT INFORMATION
  Report Type: 
  Country: None (occurrence: None)
  Receive Date: 20060214
  Receipt Date: 20051028
  Transmission Date: 20060701
  Serious: Yes (Death)
  Sender: FDA-Public Use
  Company Number: US-KINGPHARMUSA00001-K200501419

PATIENT
  Sex: Male

DRUGS (10)
  1. ALTACE [Suspect]
     Dosage: 2.5 MG, QD
     Dates: start: 20001023
  2. FUROSEMIDE [Suspect]
     Dosage: 40 MG, QD
     Dates: start: 20011129
  3. PREDNISOLONE [Suspect]
     Dosage: 3 MG, QD
  4. SPIRIVA [Suspect]
     Indication: RESPIRATION ABNORMAL
     Dosage: 18 UG, QD
     Dates: start: 20030115
  5. BECLOMETHASONE DIPROPIONATE [Suspect]
     Dosage: 1,500 UG, QD
  6. SALBUTAMOL [Suspect]
     Dosage: 5 MG/2.5 ML QID
     Dates: start: 20000606
  7. UNIPHYLLIN ^NAPP^ [Suspect]
     Dosage: 800 MG, QD (400MG Q12H)
     Route: 048
  8. WARFARIN [Suspect]
     Dosage: 3 MG, QD
     Dates: start: 20000418
  9. SALBUTAMOL [Concomitant]
     Dosage: 300 UG, UNK
     Dates: start: 20050606
  10. ENSURE PLUS [Concomitant]

REACTIONS (1)
  - CHRONIC OBSTRUCTIVE PULMONARY DISEASE [None]
